FAERS Safety Report 5855980-4 (Version None)
Quarter: 2008Q3

REPORT INFORMATION
  Report Type: 
  Country: None (occurrence: None)
  Receive Date: 20080825
  Receipt Date: 20080821
  Transmission Date: 20090109
  Serious: Yes (Death, Hospitalization, Other)
  Sender: FDA-Public Use
  Company Number: GB-TEVA-175787ISR

PATIENT
  Age: 76 Year
  Sex: Female

DRUGS (2)
  1. FLUDARABINE [Suspect]
     Indication: NON-HODGKIN'S LYMPHOMA
     Route: 048
  2. RITUXIMAB [Suspect]
     Indication: NON-HODGKIN'S LYMPHOMA
     Route: 042

REACTIONS (12)
  - BRONCHOPULMONARY ASPERGILLOSIS [None]
  - CANDIDIASIS [None]
  - EAR INFECTION [None]
  - INFLAMMATION [None]
  - LYMPHOPENIA [None]
  - MOUTH ULCERATION [None]
  - NEUTROPENIA [None]
  - OESOPHAGEAL ULCER [None]
  - OTITIS EXTERNA [None]
  - PNEUMONIA FUNGAL [None]
  - PSEUDOMONAS INFECTION [None]
  - RESPIRATORY FAILURE [None]
